FAERS Safety Report 4400473-4 (Version None)
Quarter: 2004Q3

REPORT INFORMATION
  Report Type: 
  Country: None (occurrence: None)
  Receive Date: 20040714
  Receipt Date: 20040625
  Transmission Date: 20050211
  Serious: Yes (Hospitalization)
  Sender: FDA-Public Use
  Company Number: USA040671228

PATIENT
  Age: 83 Year
  Sex: Female

DRUGS (10)
  1. FORTEO [Suspect]
     Indication: OSTEOPOROSIS
     Dates: start: 20040401
  2. LIPITOR [Concomitant]
  3. VITAMIN E [Concomitant]
  4. CALTRATE + D [Concomitant]
  5. ASPIRIN [Concomitant]
  6. NAMENDA (MEMANTINE HYDROCHLORIDE) [Concomitant]
  7. ARICEPT [Concomitant]
  8. CELEBREX [Concomitant]
  9. VITAMIN B-12 [Concomitant]
  10. LOPRESSOR (METOPRLOL TARTRATE) [Concomitant]

REACTIONS (5)
  - ABDOMINAL PAIN [None]
  - CONDITION AGGRAVATED [None]
  - DEMENTIA [None]
  - DYSPNOEA [None]
  - PHARMACEUTICAL PRODUCT COMPLAINT [None]
